FAERS Safety Report 7018129-0 (Version None)
Quarter: 2010Q3

REPORT INFORMATION
  Report Type: 
  Country: None (occurrence: None)
  Receive Date: 20100928
  Receipt Date: 20100920
  Transmission Date: 20110219
  Serious: Yes (Hospitalization)
  Sender: FDA-Public Use
  Company Number: GB-ROCHE-723392

PATIENT

DRUGS (3)
  1. BEVACIZUMAB [Suspect]
     Dosage: DATE OF LAST DOSE PRIOR TO SAE:06 SEPTEMBER 2010, TOTAL DOSE: 650 MG
     Route: 065
     Dates: start: 20100426
  2. SERTRALINE HYDROCHLORIDE [Concomitant]
     Indication: DEPRESSION
     Dosage: FREQUENCY: 1
     Dates: start: 20090901
  3. CERAZETTE [Concomitant]
     Dosage: FREQUENCY: 1

REACTIONS (3)
  - BACK PAIN [None]
  - PAIN [None]
  - SCIATICA [None]
